FAERS Safety Report 7304261-0 (Version None)
Quarter: 2011Q1

REPORT INFORMATION
  Report Type: 
  Country: None (occurrence: None)
  Receive Date: 20110221
  Receipt Date: 20110208
  Transmission Date: 20110831
  Serious: Yes (Hospitalization)
  Sender: FDA-Public Use
  Company Number: PHHY2011DE10683

PATIENT
  Age: 80 Year

DRUGS (1)
  1. RASILEZ [Suspect]
     Dosage: 300 MG, DAILY

REACTIONS (2)
  - BLOOD PRESSURE DECREASED [None]
  - CIRCULATORY COLLAPSE [None]
